FAERS Safety Report 5724804-8 (Version None)
Quarter: 2008Q2

REPORT INFORMATION
  Report Type: 
  Country: None (occurrence: None)
  Receive Date: 20080422
  Receipt Date: 20080409
  Transmission Date: 20081010
  Serious: Yes (Hospitalization, Other)
  Sender: FDA-Public Use
  Company Number: THYM-1000663

PATIENT
  Age: 50 Year
  Sex: Male
  Weight: 50 kg

DRUGS (4)
  1. THYMOGLOBULINE (ANTI-THYMOCYTE GLOBULIN (RABBIT)) POWDER FOR SOLUTION [Suspect]
     Indication: RENAL TRANSPLANT
     Dosage: 75 MG, QD,
     Dates: start: 20080331, end: 20080405
  2. METHYLPREDNISOLONE [Concomitant]
  3. METHYLPREDNISOLONE [Concomitant]
  4. MYCOPHENOLATE (MYCOPHENOLATE MOFETIL) [Concomitant]

REACTIONS (2)
  - COMPLICATIONS OF TRANSPLANTED KIDNEY [None]
  - THROMBOTIC MICROANGIOPATHY [None]
